FAERS Safety Report 16525275 (Version 3)
Quarter: 2019Q3

REPORT INFORMATION
  Report Type: Spontaneous
  Country: CA (occurrence: CA)
  Receive Date: 20190703
  Receipt Date: 20190812
  Transmission Date: 20191004
  Serious: Yes (Other)
  Sender: FDA-Public Use
  Company Number: CA-PFIZER INC-2019273108

PATIENT
  Age: 10 Year
  Sex: Male

DRUGS (5)
  1. ETOPOSIDE. [Suspect]
     Active Substance: ETOPOSIDE
     Indication: BURKITT^S LYMPHOMA STAGE III
     Dosage: 200 MG/M2, CYCLIC (200 MG/M2/DOSE I.V. OVER 2 HOURS, ONCE DAILY ? 4 DAYS ON DAYS 2, 3, 4, 5; START )
     Route: 042
  2. FILGRASTIM [Concomitant]
     Active Substance: FILGRASTIM
     Dosage: 5 UG/KG, DAILY (5 UG/KG/DOSE (MAX 300 MG) SC DAILY; START 24 HOURS AFTER THE LAST DOSE OF CH)
     Route: 058
  3. CYTARABINE. [Suspect]
     Active Substance: CYTARABINE
     Dosage: 50 MG/M2, CYCLIC (CYTARABINE 50 MG/M2/DOSE I.V. OVER 12 HOURS, ONCE DAILY ? 5 DAYS ON DAYS 1, 2, 3)
     Route: 042
  4. RITUXIMAB. [Suspect]
     Active Substance: RITUXIMAB
     Indication: BURKITT^S LYMPHOMA STAGE III
     Dosage: 375 MG/M2, CYCLIC (375 MG/M2 I.V. ON DAY 1)
     Route: 042
  5. CYTARABINE. [Suspect]
     Active Substance: CYTARABINE
     Indication: BURKITT^S LYMPHOMA STAGE III
     Dosage: 3000 MG/M2, CYCLIC (OVER 3 HOURS, ONCE DAILY FOR 4 DAYS ON DAYS 2, 3, 4, 5)
     Route: 042

REACTIONS (2)
  - Febrile neutropenia [Unknown]
  - Mucosal inflammation [Unknown]
